FAERS Safety Report 20928411 (Version 1)
Quarter: 2022Q2

REPORT INFORMATION
  Report Type: Spontaneous
  Country: US (occurrence: US)
  Receive Date: 20220607
  Receipt Date: 20220607
  Transmission Date: 20220720
  Serious: No
  Sender: FDA-Public Use
  Company Number: US-PERRIGO-22US003228

PATIENT
  Age: 74 Year
  Sex: Female
  Weight: 67.12 kg

DRUGS (3)
  1. MINOXIDIL [Suspect]
     Active Substance: MINOXIDIL
     Indication: Alopecia
     Dosage: 0.5 CAPFUL QD
     Route: 061
  2. MINOXIDIL [Suspect]
     Active Substance: MINOXIDIL
     Dosage: 0.5 CAPFUL QD
     Route: 061
     Dates: start: 20220218, end: 20220224
  3. TRIAMTERENE AND HYDROCHLOROTHIAZIDE [Concomitant]
     Active Substance: HYDROCHLOROTHIAZIDE\TRIAMTERENE
     Indication: Hypertension
     Dosage: UNK
     Route: 065

REACTIONS (2)
  - Hair texture abnormal [Not Recovered/Not Resolved]
  - Expired product administered [Recovered/Resolved]

NARRATIVE: CASE EVENT DATE: 20220218
